FAERS Safety Report 6730686-8 (Version None)
Quarter: 2010Q2

REPORT INFORMATION
  Report Type: 
  Country: None (occurrence: None)
  Receive Date: 20100518
  Receipt Date: 20100514
  Transmission Date: 20101027
  Serious: Yes (Hospitalization, Other)
  Sender: FDA-Public Use
  Company Number: CO-MERCK-1004COL00003

PATIENT
  Age: 41 Year
  Sex: Male
  Weight: 97 kg

DRUGS (6)
  1. COZAAR [Suspect]
     Route: 065
  2. CYCLOSPORINE [Concomitant]
     Indication: RENAL TRANSPLANT
     Route: 048
  3. EVEROLIMUS [Concomitant]
     Indication: RENAL TRANSPLANT
     Route: 048
  4. SULFAMETHOXAZOLE AND TRIMETHOPRIM [Concomitant]
     Route: 048
     Dates: start: 20100206
  5. PREDNISONE [Concomitant]
     Route: 048
     Dates: start: 20100206
  6. FUROSEMIDE [Suspect]
     Indication: RENAL TRANSPLANT
     Route: 048
     Dates: start: 20100206

REACTIONS (2)
  - RENAL FAILURE ACUTE [None]
  - TUBULOINTERSTITIAL NEPHRITIS [None]
